FAERS Safety Report 5235059-5 (Version None)
Quarter: 2007Q1

REPORT INFORMATION
  Report Type: 
  Country: None (occurrence: None)
  Receive Date: 20070207
  Receipt Date: 20070125
  Transmission Date: 20070707
  Serious: Yes (Other)
  Sender: FDA-Public Use
  Company Number: 2007SP001720

PATIENT
  Sex: Female

DRUGS (2)
  1. PEG-INTRON [Suspect]
     Indication: HEPATITIS C
     Dates: start: 20060208, end: 20060222
  2. REBETOL [Suspect]
     Indication: HEPATITIS C
     Dates: start: 20060208, end: 20060222

REACTIONS (4)
  - HEADACHE [None]
  - HYPEREMESIS GRAVIDARUM [None]
  - PLACENTA PRAEVIA [None]
  - PREMATURE BABY [None]
